FAERS Safety Report 6454666-5 (Version None)
Quarter: 2009Q4

REPORT INFORMATION
  Report Type: 
  Country: None (occurrence: None)
  Receive Date: 20091118
  Receipt Date: 20091103
  Transmission Date: 20100525
  Serious: Yes (Hospitalization)
  Sender: FDA-Public Use
  Company Number: 20090525

PATIENT
  Age: 32 Year
  Sex: Female

DRUGS (5)
  1. DEXAMETHASONE SODIUM PHOSPHATE [Suspect]
     Indication: PREMEDICATION
  2. PEGFILGRASTIM [Suspect]
     Dosage: 6 MG ON DAY 2
  3. DOCETAXEL [Suspect]
  4. DOXORUBICIN [Suspect]
  5. CYCLOPHOSPHAMIDE [Suspect]

REACTIONS (2)
  - NEUTROPHIL COUNT DECREASED [None]
  - PYREXIA [None]
